FAERS Safety Report 23559200 (Version 1)
Quarter: 2024Q1

REPORT INFORMATION
  Report Type: Spontaneous
  Country: US (occurrence: None)
  Receive Date: 20240222
  Receipt Date: 20240222
  Transmission Date: 20240410
  Serious: Yes (Life-Threatening, Hospitalization, Disabling, Other)
  Sender: FDA-Public Use
  Company Number: None

PATIENT
  Age: 40 Year
  Weight: 90 kg

DRUGS (1)
  1. TIANEPTINE [Suspect]
     Active Substance: TIANEPTINE
     Indication: Anxiety
     Dates: start: 20240213, end: 20240213

REACTIONS (5)
  - Dizziness [None]
  - Palpitations [None]
  - Loss of consciousness [None]
  - Seizure [None]
  - Renal disorder [None]

NARRATIVE: CASE EVENT DATE: 20240213
